FAERS Safety Report 19742252 (Version 1)
Quarter: 2021Q3

REPORT INFORMATION
  Report Type: Spontaneous
  Country: JP (occurrence: JP)
  Receive Date: 20210825
  Receipt Date: 20210825
  Transmission Date: 20211014
  Serious: Yes (Death, Hospitalization, Other)
  Sender: FDA-Public Use
  Company Number: NVSJ2021JP012380

PATIENT
  Age: 69 Year
  Sex: Female

DRUGS (10)
  1. OCTREOTIDE ACETATE. [Suspect]
     Active Substance: OCTREOTIDE ACETATE
     Indication: INSULINOMA
  2. SUNITINIB MALATE. [Concomitant]
     Active Substance: SUNITINIB MALATE
     Indication: INSULINOMA
  3. EVEROLIMUS. [Suspect]
     Active Substance: EVEROLIMUS
     Indication: INSULINOMA
  4. STREPTOZOCIN [Concomitant]
     Active Substance: STREPTOZOCIN
     Indication: PANCREATIC NEUROENDOCRINE TUMOUR
     Dosage: UNK
     Route: 065
  5. OCTREOTIDE ACETATE. [Suspect]
     Active Substance: OCTREOTIDE ACETATE
     Indication: PANCREATIC NEUROENDOCRINE TUMOUR
     Dosage: UNK
     Route: 065
  6. STREPTOZOCIN [Concomitant]
     Active Substance: STREPTOZOCIN
     Indication: INSULINOMA
  7. EVEROLIMUS. [Suspect]
     Active Substance: EVEROLIMUS
     Indication: PANCREATIC NEUROENDOCRINE TUMOUR
     Dosage: UNK
     Route: 065
  8. SUNITINIB MALATE. [Concomitant]
     Active Substance: SUNITINIB MALATE
     Indication: PANCREATIC NEUROENDOCRINE TUMOUR
     Dosage: UNK
     Route: 065
  9. OCTREOTIDE ACETATE. [Suspect]
     Active Substance: OCTREOTIDE ACETATE
  10. DIAZOXIDE [Concomitant]
     Active Substance: DIAZOXIDE
     Indication: HYPOGLYCAEMIA
     Dosage: UNK
     Route: 065

REACTIONS (10)
  - Myelosuppression [Unknown]
  - Fluid retention [Unknown]
  - Metastases to peritoneum [Unknown]
  - Hypoglycaemia [Unknown]
  - Femoral neck fracture [Unknown]
  - Malignant neoplasm progression [Unknown]
  - General physical health deterioration [Fatal]
  - Metastases to liver [Unknown]
  - Asthenia [Unknown]
  - Product use in unapproved indication [Unknown]
